FAERS Safety Report 20375787 (Version 2)
Quarter: 2022Q1

REPORT INFORMATION
  Report Type: Spontaneous
  Country: US (occurrence: US)
  Receive Date: 20220125
  Receipt Date: 20220223
  Transmission Date: 20220424
  Serious: Yes (Other)
  Sender: FDA-Public Use
  Company Number: US-GW PHARMA-202201USGW00284

PATIENT
  Age: 50 Year
  Sex: Female
  Weight: 90 kg

DRUGS (2)
  1. EPIDIOLEX [Suspect]
     Active Substance: CANNABIDIOL
     Indication: Idiopathic generalised epilepsy
     Dosage: 9.73 MG/KG/DAY, 438 MILLIGRAM, BID
     Route: 048
     Dates: start: 20211223, end: 20211229
  2. EPIDIOLEX [Suspect]
     Active Substance: CANNABIDIOL
     Dosage: 20.09 MG/KG/DAY, 904 MILLIGRAM, BID
     Route: 048
     Dates: start: 20211230

REACTIONS (4)
  - Erythema multiforme [Recovered/Resolved]
  - COVID-19 [Unknown]
  - Cardiovascular symptom [Unknown]
  - Product use in unapproved indication [Unknown]

NARRATIVE: CASE EVENT DATE: 20220116
